FAERS Safety Report 4550665-9 (Version None)
Quarter: 2004Q4

REPORT INFORMATION
  Report Type: 
  Country: None (occurrence: None)
  Receive Date: 20041227
  Receipt Date: 20040903
  Transmission Date: 20050328
  Serious: No
  Sender: FDA-Public Use
  Company Number: 04P-163-0272425-00

PATIENT
  Age: 69 Year
  Sex: Female
  Weight: 74.8435 kg

DRUGS (8)
  1. HUMIRA [Suspect]
     Indication: RHEUMATOID ARTHRITIS
     Dosage: 40 MG, 1 IN 2 WK, SUBCUTANEOUS
     Route: 058
     Dates: start: 20040624
  2. VICODIN [Concomitant]
  3. PILOCARPINE HYDROCHLORIDE [Concomitant]
  4. NABUMETONE [Concomitant]
  5. HYOSCYAMINE SULFATE [Concomitant]
  6. MULTIVITAMIN [Concomitant]
  7. RISEDRONATE SODIUM [Concomitant]
  8. TIZANIDINE HCL [Concomitant]

REACTIONS (1)
  - ENURESIS [None]
